FAERS Safety Report 7636531-0 (Version None)
Quarter: 2011Q3

REPORT INFORMATION
  Report Type: 
  Country: None (occurrence: None)
  Receive Date: 20110726
  Receipt Date: 20110720
  Transmission Date: 20111222
  Serious: Yes (Hospitalization, Disabling)
  Sender: FDA-Public Use
  Company Number: US-MERCK-1105USA03912

PATIENT
  Age: 74 Year
  Sex: Female
  Weight: 64 kg

DRUGS (4)
  1. ALENDRONATE SODIUM [Suspect]
     Route: 048
     Dates: start: 20080228, end: 20100317
  2. FOSAMAX [Suspect]
     Route: 048
     Dates: start: 20010101, end: 20100601
  3. FOSAMAX [Suspect]
     Indication: OSTEOPOROSIS
     Route: 048
     Dates: start: 19980522, end: 19990801
  4. FOSAMAX [Suspect]
     Route: 048
     Dates: start: 19990801, end: 20010101

REACTIONS (15)
  - OSTEONECROSIS OF JAW [None]
  - LOOSE TOOTH [None]
  - ORAL INFECTION [None]
  - JAW DISORDER [None]
  - FACE OEDEMA [None]
  - HYPERTENSION [None]
  - DIABETES MELLITUS [None]
  - SENSITIVITY OF TEETH [None]
  - IMPAIRED HEALING [None]
  - JAW CYST [None]
  - BLOOD CHOLESTEROL INCREASED [None]
  - TOOTH DISORDER [None]
  - ABSCESS [None]
  - EXOSTOSIS [None]
  - FISTULA DISCHARGE [None]
